FAERS Safety Report 4980335-4 (Version None)
Quarter: 2006Q2

REPORT INFORMATION
  Report Type: 
  Country: None (occurrence: None)
  Receive Date: 20060424
  Receipt Date: 20060411
  Transmission Date: 20061013
  Serious: Yes (Other)
  Sender: FDA-Public Use
  Company Number: PHEH2006US04799

PATIENT
  Age: 66 Year
  Sex: Female
  Weight: 44.444 kg

DRUGS (1)
  1. LOTREL [Suspect]
     Indication: HYPERTENSION
     Dosage: 5/10 MG, QD
     Route: 048
     Dates: start: 20050301

REACTIONS (8)
  - BLOOD PRESSURE INADEQUATELY CONTROLLED [None]
  - BLOOD PRESSURE SYSTOLIC INCREASED [None]
  - ERYTHEMA [None]
  - GLUCOSE TOLERANCE IMPAIRED [None]
  - GLYCOSYLATED HAEMOGLOBIN INCREASED [None]
  - PRURITUS [None]
  - URTICARIA [None]
  - WEIGHT DECREASED [None]
